FAERS Safety Report 5676374-0 (Version None)
Quarter: 2008Q1

REPORT INFORMATION
  Report Type: 
  Country: None (occurrence: None)
  Receive Date: 20080321
  Receipt Date: 20080311
  Transmission Date: 20080703
  Serious: Yes (Other)
  Sender: FDA-Public Use
  Company Number: US-PFIZER INC-2008023200

PATIENT
  Sex: Female
  Weight: 131.81 kg

DRUGS (3)
  1. DILANTIN [Suspect]
     Indication: DYSTONIA
  2. GLIPIZIDE [Concomitant]
  3. ATENOLOL [Concomitant]

REACTIONS (3)
  - CYSTITIS [None]
  - OEDEMA [None]
  - OEDEMA PERIPHERAL [None]
